FAERS Safety Report 5107943-4 (Version None)
Quarter: 2006Q3

REPORT INFORMATION
  Report Type: 
  Country: None (occurrence: None)
  Receive Date: 20060914
  Receipt Date: 20060907
  Transmission Date: 20061208
  Serious: Yes (Hospitalization)
  Sender: FDA-Public Use
  Company Number: 06H-167-0309985-00

PATIENT
  Sex: Female

DRUGS (1)
  1. TAZICEF [Suspect]
     Indication: DRUG USE FOR UNKNOWN INDICATION
     Dosage: 2 IN 1 D
     Dates: start: 20060101, end: 20060101

REACTIONS (2)
  - BLOOD SODIUM INCREASED [None]
  - DEHYDRATION [None]
